FAERS Safety Report 4866026-9 (Version None)
Quarter: 2005Q4

REPORT INFORMATION
  Report Type: 
  Country: None (occurrence: None)
  Receive Date: 20051221
  Receipt Date: 20051208
  Transmission Date: 20060501
  Serious: Yes (Hospitalization)
  Sender: FDA-Public Use
  Company Number: 220192

PATIENT
  Age: 78 Year
  Sex: Female
  Weight: 86.6 kg

DRUGS (12)
  1. RITUXAN [Suspect]
     Indication: CHRONIC LYMPHOCYTIC LEUKAEMIA
     Dates: end: 20050913
  2. FLUDARABINE PHOSPHATE [Suspect]
     Indication: CHRONIC LYMPHOCYTIC LEUKAEMIA
     Dates: end: 20050901
  3. CYCLOPHOSPHAMIDE [Suspect]
     Indication: CHRONIC LYMPHOCYTIC LEUKAEMIA
     Dates: end: 20050901
  4. LESCOL [Concomitant]
  5. ATENOLOL [Concomitant]
  6. PLAVIX [Concomitant]
  7. BUMEX [Concomitant]
  8. PAXIL [Concomitant]
  9. POTASSIUM (POTASSIUM NOS) [Concomitant]
  10. MOBIC [Concomitant]
  11. PREDNISONE [Concomitant]
  12. STEROID NOS (STEROID NOS) [Concomitant]

REACTIONS (12)
  - ACTIVATED PARTIAL THROMBOPLASTIN TIME PROLONGED [None]
  - BLOOD CREATININE INCREASED [None]
  - BLOOD POTASSIUM INCREASED [None]
  - BLOOD SODIUM DECREASED [None]
  - BLOOD UREA INCREASED [None]
  - DIABETIC HYPEROSMOLAR COMA [None]
  - DIABETIC KETOACIDOSIS [None]
  - ELECTROCARDIOGRAM ST-T CHANGE [None]
  - HAEMOLYTIC ANAEMIA [None]
  - PLATELET COUNT DECREASED [None]
  - PROTHROMBIN TIME SHORTENED [None]
  - WHITE BLOOD CELL COUNT DECREASED [None]
